FAERS Safety Report 18979944 (Version 2)
Quarter: 2021Q1

REPORT INFORMATION
  Report Type: Report from Study
  Country: GB (occurrence: GB)
  Receive Date: 20210308
  Receipt Date: 20210322
  Transmission Date: 20210420
  Serious: Yes (Other)
  Sender: FDA-Public Use
  Company Number: GB-AMGEN-GBRSL2021034815

PATIENT
  Age: 63 Year
  Sex: Male

DRUGS (1)
  1. AMGEVITA [Suspect]
     Active Substance: ADALIMUMAB
     Indication: COLITIS ULCERATIVE
     Dosage: 40 MILLIGRAM, QWK
     Route: 065

REACTIONS (6)
  - Oropharyngeal pain [Unknown]
  - Dry skin [Unknown]
  - Aphonia [Unknown]
  - Haemorrhage [Unknown]
  - Off label use [Unknown]
  - Erythema [Unknown]
